FAERS Safety Report 20901391 (Version 2)
Quarter: 2022Q3

REPORT INFORMATION
  Report Type: Spontaneous
  Country: DE (occurrence: DE)
  Receive Date: 20220601
  Receipt Date: 20220704
  Transmission Date: 20221027
  Serious: Yes (Hospitalization, Disabling)
  Sender: FDA-Public Use
  Company Number: DE-NOVARTISPH-NVSC2022DE121683

PATIENT
  Age: 65 Year
  Sex: Female

DRUGS (20)
  1. CARBOPLATIN [Suspect]
     Active Substance: CARBOPLATIN
     Indication: Non-small cell lung cancer
     Dosage: 578 MG (3 DAYS IN A ROW)
     Route: 065
     Dates: start: 20211118, end: 20211214
  2. YERVOY [Suspect]
     Active Substance: IPILIMUMAB
     Indication: Non-small cell lung cancer
     Dosage: 70 MG, EVERY 6 WEEKS
     Route: 042
     Dates: start: 20211118
  3. YERVOY [Suspect]
     Active Substance: IPILIMUMAB
     Dosage: UNK
     Route: 065
     Dates: end: 20220106
  4. OPDIVO [Suspect]
     Active Substance: NIVOLUMAB
     Indication: Non-small cell lung cancer
     Dosage: 360 MG, EVERY 6 WEEKS
     Route: 065
     Dates: start: 20211118
  5. OPDIVO [Suspect]
     Active Substance: NIVOLUMAB
     Dosage: 360 MG, EVERY 6 WEEKS
     Route: 042
     Dates: start: 20211118, end: 20220106
  6. ONDANSETRON [Concomitant]
     Active Substance: ONDANSETRON
     Indication: Prophylaxis
     Dosage: 8 MG, ONDANSETRON ABZ 8MG 30 FILM TABLETS N3
     Route: 065
     Dates: start: 20211116, end: 20220106
  7. AMPHO-MORONAL [Concomitant]
     Active Substance: AMPHOTERICIN B
     Indication: Prophylaxis
     Dosage: AMPHO-MORONAL SUSPENSION, 100 MG/ML 50ML N2
     Route: 065
     Dates: start: 20211214, end: 20220112
  8. SALIVA NATURA [Concomitant]
     Indication: Prophylaxis
     Dosage: 250 ML (PUMP SPRAY)
     Route: 065
     Dates: start: 20211215
  9. SALIVA NATURA [Concomitant]
     Dosage: MOUTH SPRAY 250ML PUMPSPRAY
     Route: 065
     Dates: start: 20211215, end: 20220222
  10. TETRACAINE HYDROCHLORIDE [Concomitant]
     Active Substance: TETRACAINE HYDROCHLORIDE
     Indication: Prophylaxis
     Dosage: UNK
     Route: 065
     Dates: start: 20211214
  11. FOSAPREPITANT [Concomitant]
     Active Substance: FOSAPREPITANT
     Indication: Prophylaxis
     Dosage: 150 MG, 1 ST POWDER FOR SOLUTION FOR INFUSION N1 PZN:163498
     Route: 065
     Dates: start: 20211118, end: 20211214
  12. GRANI DENK [Concomitant]
     Indication: Prophylaxis
     Dosage: K 1MG/ML CONCENTRATE FOR SOLUTION FOR INJECTION OR INFUSION 5X1 ML N2 PZN:10943671
     Route: 065
     Dates: start: 20211118, end: 20211214
  13. GLANDOMED [Concomitant]
     Indication: Prophylaxis
     Dosage: 500 ML
     Route: 065
     Dates: start: 20211214, end: 20220122
  14. PAMIDRONATE DISODIUM [Concomitant]
     Active Substance: PAMIDRONATE DISODIUM
     Indication: Product used for unknown indication
     Dosage: 3MG/ML 60MG CONCENTRATE FOR SOLUTION FOR INFUSION 1 ST N1
     Route: 065
     Dates: start: 20211125
  15. DEXAMETHASONE [Concomitant]
     Active Substance: DEXAMETHASONE
     Indication: Product used for unknown indication
     Dosage: 4 MG
     Route: 065
     Dates: start: 20220114, end: 20220208
  16. PREDNISOLONE [Concomitant]
     Active Substance: PREDNISOLONE
     Indication: Product used for unknown indication
     Dosage: 20 MG
     Route: 065
     Dates: start: 20220411, end: 20220509
  17. PREDNISOLONE [Concomitant]
     Active Substance: PREDNISOLONE
     Dosage: 10 MG
     Route: 065
     Dates: start: 20220509
  18. LEVOTHYROXINE [Concomitant]
     Active Substance: LEVOTHYROXINE
     Indication: Product used for unknown indication
     Dosage: UNK
     Route: 065
     Dates: start: 20220510
  19. MCP [Concomitant]
     Active Substance: METOCLOPRAMIDE HYDROCHLORIDE
     Indication: Prophylaxis
     Dosage: 10 MG, MCP - 1 A PHARMA 10MG 100 TABL. N3
     Route: 065
     Dates: start: 20211116, end: 20220115
  20. PANTOPRAZOLE SODIUM [Concomitant]
     Active Substance: PANTOPRAZOLE SODIUM
     Indication: Prophylaxis
     Dosage: 40 MG
     Route: 065
     Dates: start: 20220127, end: 20220331

REACTIONS (2)
  - Dysphagia [Unknown]
  - Off label use [Unknown]

NARRATIVE: CASE EVENT DATE: 20220401
